FAERS Safety Report 24682633 (Version 1)
Quarter: 2024Q4

REPORT INFORMATION
  Report Type: Spontaneous
  Country: GB (occurrence: GB)
  Receive Date: 20241130
  Receipt Date: 20241130
  Transmission Date: 20250115
  Serious: Yes (Hospitalization, Other)
  Sender: DEXCEL
  Company Number: None

PATIENT
  Age: 62 Year
  Sex: Female

DRUGS (11)
  1. Folic acidFOLIC ACID (Specific Substance SUB5909) [Concomitant]
     Dosage: 5 MG TABLETS 2 PER WEEK - MON + THURS
  2. Magnesium aspartateMAGNESIUM ASPARTATE (Specific Substance Variant ... [Concomitant]
     Dosage: (MAGNESIUM 10 MMOL) ORAL POWDER SACHETS ONE SACHET TWICE DAILY 8 SACHET
  3. ColecalciferolCOLECALCIFEROL [Concomitant]
     Dosage: 20,000 UNIT TABLETS 1 CAPSULE EVERY OTHER MONTH
  4. CitalopramCITALOPRAM (Specific Substance SUB4547) [Concomitant]
     Dosage: 10 MG TABLETS ONE TO BE TAKEN EACH DAY?20 MG TABLETS ONE TO BE TAKEN EACH DAY
  5. AMLODIPINE [Concomitant]
     Active Substance: AMLODIPINE BESYLATE
     Dosage: 5 MG TABLETS ONE TO BE TAKEN EACH DAY
  6. Risedronate sodiumRISEDRONATE SODIUM (Specific Substance Variant SU... [Concomitant]
     Dosage: 35 MG TABLETS ONE TO BE TAKEN ON THE SAME DAY EACH WEEK
  7. Sando-K effervescent tablets (HK Pharma Ltd)SANDO-K (Specific MP Gr... [Concomitant]
     Dosage: 1 TWICE A DAY 8 TABLET
  8. OMEPRAZOLE [Suspect]
     Active Substance: OMEPRAZOLE
     Dosage: 20 MG GASTRO-RESISTANT CAPSULES ONE TO BE TAKEN EACH DAY OM 28L
  9. ASPIRIN [Concomitant]
     Active Substance: ASPIRIN
     Dosage: 75 MG DISPERSIBLE TABLETS ONE TO BE TAKEN EACH DAY
  10. Tacrolimus (Advagrarf)ADVAGRAF (Specific MP Group PGR5425846) [Concomitant]
     Dosage: 1 MG MR CAPSULES 1 MG ONCE DAILY OM 50L
  11. HydroxocobalaminHYDROXOCOBALAMIN [Concomitant]
     Dosage: 1 MG / 1 ML SOLUTION FOR INJECTION AMPOULES 1 MG 3 TIMES PER WEEK FOR 2 WEEKS THEN 1 MG EVERY 12 ...

REACTIONS (1)
  - Hypomagnesaemia [Unknown]
